FAERS Safety Report 5064813-8 (Version None)
Quarter: 2006Q3

REPORT INFORMATION
  Report Type: 
  Country: None (occurrence: None)
  Receive Date: 20060725
  Receipt Date: 20060718
  Transmission Date: 20061208
  Serious: Yes (Other)
  Sender: FDA-Public Use
  Company Number: GXBR2006US01454

PATIENT
  Age: 70 Year
  Sex: Male
  Weight: 88.4 kg

DRUGS (3)
  1. NAFCILLIN FOR INJECTION, USP (NGX)(NAFCILLIN) POWDER FOR SOL FOR INJ [Suspect]
     Indication: ENDOCARDITIS
     Dosage: 12 G, QD, INTRAVENOUS
     Route: 042
     Dates: start: 20060529, end: 20060711
  2. SYNTHROID [Concomitant]
  3. MULTIVITAMINS (ASCORBIC ACID, ERGOCALCIFEROL, FOLIC ACID, NICOTINAMIDE [Concomitant]

REACTIONS (6)
  - BLOOD BILIRUBIN INCREASED [None]
  - BLOOD LACTATE DEHYDROGENASE INCREASED [None]
  - HAEMOLYTIC ANAEMIA [None]
  - RED BLOOD CELL COUNT DECREASED [None]
  - RETICULOCYTE COUNT INCREASED [None]
  - RETICULOCYTE PERCENTAGE INCREASED [None]
